FAERS Safety Report 10036471 (Version 3)
Quarter: 2015Q1

REPORT INFORMATION
  Report Type: Report from Study
  Country: IT (occurrence: IT)
  Receive Date: 20140326
  Receipt Date: 20150109
  Transmission Date: 20150720
  Serious: Yes (Life-Threatening, Hospitalization)
  Sender: FDA-Public Use
  Company Number: IT-ROCHE-1078220

PATIENT
  Age: 66 Year
  Sex: Female
  Weight: 43.5 kg

DRUGS (29)
  1. VINCRISTINE [Suspect]
     Active Substance: VINCRISTINE
     Indication: DIFFUSE LARGE B-CELL LYMPHOMA
     Dosage: LAST DOSE PRIOR TO SAE 24/MAY/2012, LAST DOSE TAKEN 2 MG
     Route: 050
     Dates: start: 20120308, end: 20120613
  2. TACHIPIRINA [Concomitant]
     Active Substance: ACETAMINOPHEN
     Indication: HEADACHE
     Route: 065
     Dates: start: 20120403
  3. ENSURE [Concomitant]
     Active Substance: AMINO ACIDS\DEXTROSE\ELECTROLYTES NOS\SOYBEAN OIL\VITAMINS
     Route: 065
     Dates: start: 20120516
  4. ONDANSETRON [Concomitant]
     Active Substance: ONDANSETRON
     Route: 065
     Dates: start: 20120524, end: 20120611
  5. NAVOBAN [Concomitant]
     Active Substance: TROPISETRON HYDROCHLORIDE
     Indication: NAUSEA
     Route: 065
     Dates: start: 20120524, end: 20120524
  6. DELTACORTENE [Concomitant]
     Active Substance: PREDNISONE
     Route: 065
     Dates: start: 20120529, end: 20120531
  7. KCL-RETARD ZYMA [Concomitant]
     Route: 065
     Dates: start: 20120410, end: 20120612
  8. DIFLUCAN [Concomitant]
     Active Substance: FLUCONAZOLE
     Route: 065
     Dates: start: 20120510, end: 20120517
  9. DEURSIL [Concomitant]
     Active Substance: URSODIOL
     Route: 065
     Dates: start: 20120516, end: 20120523
  10. DEURSIL [Concomitant]
     Active Substance: URSODIOL
     Route: 065
     Dates: start: 20120530, end: 20120612
  11. CYCLOPHOSPHAMIDE. [Suspect]
     Active Substance: CYCLOPHOSPHAMIDE
     Indication: DIFFUSE LARGE B-CELL LYMPHOMA
     Dosage: LAST DOSE PRIOR TO SAE 24/MAY/2012, LAST DOSE TAKEN, 530 MG
     Route: 042
     Dates: start: 20120308, end: 20120613
  12. CIPRALEX [Concomitant]
     Active Substance: ESCITALOPRAM OXALATE
  13. X-PREP [Concomitant]
     Indication: CONSTIPATION
     Route: 065
     Dates: start: 20120410, end: 20120516
  14. PANTORC [Concomitant]
     Active Substance: PANTOPRAZOLE SODIUM
     Indication: PROPHYLAXIS
     Route: 065
     Dates: start: 20120508
  15. ACETYLSALICYLIC ACID [Concomitant]
     Active Substance: ASPIRIN
     Route: 065
     Dates: start: 20120510, end: 20120613
  16. TRIMETON (CHLORPHENIRAMINE MALEATE) [Concomitant]
     Route: 065
     Dates: start: 20120524, end: 20120524
  17. TACHIPIRINA [Concomitant]
     Active Substance: ACETAMINOPHEN
     Indication: PYREXIA
     Route: 065
     Dates: start: 20120524, end: 20120524
  18. DIFLUCAN [Concomitant]
     Active Substance: FLUCONAZOLE
     Route: 065
     Dates: start: 20120525, end: 20120612
  19. SULFAMETHOXAZOLE/TRIMETHOPRIM [Concomitant]
     Active Substance: SULFAMETHOXAZOLE\TRIMETHOPRIM
     Route: 065
     Dates: start: 20120510, end: 20120612
  20. BENERVA [Concomitant]
     Active Substance: THIAMINE
     Route: 065
     Dates: start: 20120612, end: 20120612
  21. ACICLOVIR [Concomitant]
     Active Substance: ACYCLOVIR
     Route: 065
     Dates: start: 20120403, end: 20120612
  22. AMOXICILLIN/CLAVULANIC ACID [Concomitant]
     Active Substance: AMOXICILLIN\CLAVULANIC ACID
     Route: 065
     Dates: start: 20120516, end: 20120522
  23. ZITHROMAX [Concomitant]
     Active Substance: AZITHROMYCIN DIHYDRATE
     Indication: PYREXIA
     Route: 065
     Dates: start: 20120605, end: 20120612
  24. SOLDESAM [Concomitant]
     Active Substance: DEXAMETHASONE
     Indication: LYMPHOMA
     Route: 065
     Dates: start: 20120613
  25. PREDNISONE. [Suspect]
     Active Substance: PREDNISONE
     Indication: DIFFUSE LARGE B-CELL LYMPHOMA
     Dosage: LAST DOSE PRIOR TO SAE 28/MAY/2012, LAST DOSE TAKEN, 100 MG
     Route: 048
     Dates: start: 20120307, end: 20120613
  26. DOXORUBICIN [Suspect]
     Active Substance: DOXORUBICIN
     Indication: DIFFUSE LARGE B-CELL LYMPHOMA
     Dosage: LAST DOSE PRIOR TO SAE 24/MAY/2012, LAST DOSE TAKEN: 36 MG
     Route: 042
     Dates: start: 20120308, end: 20120613
  27. LEVOFLOXACIN. [Concomitant]
     Active Substance: LEVOFLOXACIN
     Route: 065
     Dates: start: 20120513, end: 20120517
  28. SOLU-CORTEF [Concomitant]
     Active Substance: HYDROCORTISONE SODIUM SUCCINATE
     Route: 065
     Dates: start: 20120524, end: 20120524
  29. OBINUTUZUMAB [Suspect]
     Active Substance: OBINUTUZUMAB
     Indication: DIFFUSE LARGE B-CELL LYMPHOMA
     Dosage: DOSE CONCENTRATION 4 MG/ML, LAST DOSE PRIOR TO SAE 24/MAY/2012, VOLUME OF LAST DOSE TAKEN, 250 ML
     Route: 042
     Dates: start: 20120307, end: 20120613

REACTIONS (2)
  - Meningitis [Not Recovered/Not Resolved]
  - Meningitis [Recovered/Resolved]

NARRATIVE: CASE EVENT DATE: 20120612
